FAERS Safety Report 5193672-8 (Version None)
Quarter: 2006Q4

REPORT INFORMATION
  Report Type: 
  Country: None (occurrence: None)
  Receive Date: 20061221
  Receipt Date: 20061205
  Transmission Date: 20070319
  Serious: Yes (Hospitalization)
  Sender: FDA-Public Use
  Company Number: 2006-329

PATIENT
  Age: 52 Year
  Sex: Female

DRUGS (4)
  1. CARBOPLATIN [Suspect]
  2. DOCETAXEL [Suspect]
  3. ANTHRACYCLINES [Concomitant]
  4. TAXANES [Concomitant]

REACTIONS (5)
  - ASTHENIA [None]
  - COLITIS [None]
  - HYPERAMMONAEMIA [None]
  - MULTI-ORGAN FAILURE [None]
  - PERFORMANCE STATUS DECREASED [None]
